FAERS Safety Report 23195546 (Version 1)
Quarter: 2023Q4

REPORT INFORMATION
  Report Type: Spontaneous
  Country: US (occurrence: US)
  Receive Date: 20231117
  Receipt Date: 20231117
  Transmission Date: 20240109
  Serious: Yes (Other)
  Sender: FDA-Public Use
  Company Number: US-SA-SAC20231115001441

PATIENT
  Age: 55 Year
  Sex: Female
  Weight: 77.1 kg

DRUGS (1)
  1. DUPIXENT [Suspect]
     Active Substance: DUPILUMAB
     Indication: Asthma
     Dosage: 300 MG, QOW
     Route: 058
     Dates: start: 202008

REACTIONS (7)
  - COVID-19 pneumonia [Recovering/Resolving]
  - Productive cough [Recovering/Resolving]
  - Upper respiratory tract congestion [Recovering/Resolving]
  - Sleep disorder [Recovering/Resolving]
  - Dermatitis allergic [Unknown]
  - Pain [Recovered/Resolved]
  - Musculoskeletal stiffness [Recovered/Resolved]

NARRATIVE: CASE EVENT DATE: 20230101
